FAERS Safety Report 8816017 (Version 3)
Quarter: 2012Q4

REPORT INFORMATION
  Report Type: 
  Country: US (occurrence: US)
  Receive Date: 20120928
  Receipt Date: 20121210
  Transmission Date: 20130627
  Serious: Yes (Other)
  Sender: FDA-Public Use
  Company Number: US-PFIZER INC-2012236923

PATIENT
  Sex: Female

DRUGS (8)
  1. XALATAN [Suspect]
     Indication: GLAUCOMA
     Dosage: one drop both eye QHS
     Route: 047
     Dates: start: 20060206
  2. ATENOLOL [Concomitant]
  3. GABAPENTIN [Concomitant]
  4. LEVOTHYROXINE [Concomitant]
  5. HYDROCODONE [Concomitant]
  6. CALCIUM [Concomitant]
  7. FLAXSEED [Concomitant]
  8. PRILOSEC [Concomitant]

REACTIONS (2)
  - Visual acuity reduced [Unknown]
  - Hip fracture [Unknown]
